FAERS Safety Report 8050757-6 (Version None)
Quarter: 2012Q1

REPORT INFORMATION
  Report Type: 
  Country: None (occurrence: None)
  Receive Date: 20120117
  Receipt Date: 20120117
  Transmission Date: 20120608
  Serious: Yes (Other)
  Sender: FDA-Public Use
  Company Number: None

PATIENT
  Sex: Male
  Weight: 74.842 kg

DRUGS (1)
  1. CIPROFLOXACIN [Suspect]
     Indication: CYSTITIS
     Dosage: 500MG
     Route: 048
     Dates: start: 20120106, end: 20120107

REACTIONS (4)
  - BURNING SENSATION [None]
  - PAIN IN EXTREMITY [None]
  - TENDON PAIN [None]
  - PARAESTHESIA [None]
